FAERS Safety Report 15169657 (Version 1)
Quarter: 2018Q3

REPORT INFORMATION
  Report Type: Report from Study
  Country: None (occurrence: RO)
  Receive Date: 20180720
  Receipt Date: 20180720
  Transmission Date: 20181010
  Serious: Yes (Hospitalization)
  Sender: FDA-Public Use
  Company Number: RO-ABBVIE-18S-135-2423297-00

PATIENT
  Age: 72 Year
  Sex: Male

DRUGS (6)
  1. DUODOPA [Suspect]
     Active Substance: CARBIDOPA\LEVODOPA
     Indication: PARKINSON^S DISEASE
     Dosage: DM=3.00?DC=5.90?ED=4.30?NRED=3;
     Route: 050
     Dates: start: 20141126
  2. FOCUSIN [Concomitant]
     Indication: URETHRAL ADENOMA
     Route: 048
  3. FUROSEMID [Concomitant]
     Active Substance: FUROSEMIDE
     Indication: HYPERTENSION
     Route: 048
  4. CARVEDILOL. [Concomitant]
     Active Substance: CARVEDILOL
     Indication: HYPERTENSION
     Route: 048
  5. CONTROLOC [Concomitant]
     Active Substance: PANTOPRAZOLE SODIUM
     Indication: PRODUCT USED FOR UNKNOWN INDICATION
     Route: 048
  6. RIVOTRIL [Concomitant]
     Active Substance: CLONAZEPAM
     Indication: INSOMNIA
     Route: 048

REACTIONS (4)
  - Diarrhoea [Recovering/Resolving]
  - Abdominal pain [Recovering/Resolving]
  - Hyperhidrosis [Recovering/Resolving]
  - Pyrexia [Recovering/Resolving]

NARRATIVE: CASE EVENT DATE: 20180713
